FAERS Safety Report 7961118-X (Version None)
Quarter: 2011Q4

REPORT INFORMATION
  Report Type: 
  Country: None (occurrence: None)
  Receive Date: 20111202
  Receipt Date: 20111121
  Transmission Date: 20120403
  Serious: Yes (Death, Hospitalization, Other)
  Sender: FDA-Public Use
  Company Number: 2011MA016775

PATIENT
  Age: 38 Year
  Sex: Female

DRUGS (3)
  1. EPIRUBICIN HYDROCHLORIDE [Suspect]
     Indication: OESOPHAGEAL ADENOCARCINOMA
     Dosage: 50 MG/M2;UNK;IV
     Route: 042
  2. OXALIPLATIN [Suspect]
     Indication: OESOPHAGEAL ADENOCARCINOMA
     Dosage: 130 MG/M2;UNK;IV
     Route: 042
  3. FLUOROURACIL [Suspect]
     Indication: OESOPHAGEAL ADENOCARCINOMA
     Dosage: 500 MG/M2;UNK;IV
     Route: 042

REACTIONS (17)
  - PYREXIA [None]
  - HEART INJURY [None]
  - NEUROLOGICAL DECOMPENSATION [None]
  - GRAND MAL CONVULSION [None]
  - VOMITING [None]
  - GASTROINTESTINAL TOXICITY [None]
  - HAEMATEMESIS [None]
  - FAT EMBOLISM [None]
  - MENTAL STATUS CHANGES [None]
  - AIR EMBOLISM [None]
  - INTRACRANIAL PRESSURE INCREASED [None]
  - BRAIN OEDEMA [None]
  - CONFUSIONAL STATE [None]
  - NAUSEA [None]
  - IATROGENIC INJURY [None]
  - GASTROINTESTINAL INJURY [None]
  - FISTULA [None]
